FAERS Safety Report 23566037 (Version 1)
Quarter: 2024Q1

REPORT INFORMATION
  Report Type: Spontaneous
  Country: US (occurrence: None)
  Receive Date: 20240225
  Receipt Date: 20240225
  Transmission Date: 20240410
  Serious: No
  Sender: FDA-Public Use
  Company Number: None

PATIENT
  Age: 71 Year
  Sex: Female
  Weight: 54.9 kg

DRUGS (5)
  1. PAXLOVID [Suspect]
     Active Substance: NIRMATRELVIR\RITONAVIR
     Indication: COVID-19
     Dosage: FREQUENCY : TWICE A DAY;?
     Route: 048
     Dates: start: 20240221, end: 20240224
  2. LOSARTAN [Concomitant]
     Active Substance: LOSARTAN
  3. B-12 complex [Concomitant]
  4. CALCIUM [Concomitant]
     Active Substance: CALCIUM
  5. CHOLECALCIFEROL [Concomitant]
     Active Substance: CHOLECALCIFEROL

REACTIONS (8)
  - Dysgeusia [None]
  - Dysgeusia [None]
  - Malaise [None]
  - Nausea [None]
  - Diarrhoea [None]
  - Faeces discoloured [None]
  - Nasal congestion [None]
  - Therapy cessation [None]

NARRATIVE: CASE EVENT DATE: 20240223
